FAERS Safety Report 20471488 (Version 1)
Quarter: 2022Q1

REPORT INFORMATION
  Report Type: Spontaneous
  Country: US (occurrence: US)
  Receive Date: 20220214
  Receipt Date: 20220214
  Transmission Date: 20220423
  Serious: No
  Sender: FDA-Public Use
  Company Number: US-SA-SAC20220208000411

PATIENT
  Sex: Female
  Weight: 34 kg

DRUGS (2)
  1. DUPIXENT [Suspect]
     Active Substance: DUPILUMAB
     Indication: Dermatitis atopic
     Dosage: 200 MG, QOW
     Route: 058
     Dates: start: 20211209
  2. COVID-19 VACCINE [Concomitant]
     Indication: Immunisation

REACTIONS (2)
  - Dry skin [Unknown]
  - Pruritus [Unknown]
